FAERS Safety Report 11196918 (Version 1)
Quarter: 2015Q2

REPORT INFORMATION
  Report Type: Report from Study
  Country: BE (occurrence: BE)
  Receive Date: 20150617
  Receipt Date: 20150617
  Transmission Date: 20150821
  Serious: Yes (Hospitalization)
  Sender: FDA-Public Use
  Company Number: BE-ABBVIE-15P-013-1341872-00

PATIENT
  Sex: Female

DRUGS (6)
  1. DUODOPA [Suspect]
     Active Substance: CARBIDOPA\LEVODOPA
     Dosage: AM 0ML, CONT DOSE 2.3ML/H (16 HRS), ND 1.6ML (8HRS), ED 1.5ML
     Route: 050
     Dates: start: 20150127, end: 20150609
  2. DUODOPA [Suspect]
     Active Substance: CARBIDOPA\LEVODOPA
     Dosage: AM 0ML, CONT DOSE 2.1ML/H (16 HRS), ND 1.6ML (8HRS), ED 1ML
     Route: 050
     Dates: start: 20140225, end: 20150127
  3. LEVODOPA/BENSERAZIDE [Concomitant]
     Active Substance: BENSERAZIDE\LEVODOPA
     Indication: PARKINSON^S DISEASE
     Dosage: EMERGENCY MEDICATION?100/25MG
     Route: 048
  4. DUODOPA [Suspect]
     Active Substance: CARBIDOPA\LEVODOPA
     Dosage: AM: 0ML; CD: 2.3ML/H FOR 16HRS; ND: 1.7ML/H FOR 8HRS; ED: 1.5ML
     Route: 050
     Dates: start: 20150609
  5. DUODOPA [Suspect]
     Active Substance: CARBIDOPA\LEVODOPA
     Indication: PARKINSON^S DISEASE
     Dosage: AM 1ML, CONT DOSE 2ML/H (16 HRS), ND 1.5ML (8HRS), ED 1.5ML
     Route: 050
     Dates: start: 20130312, end: 20131211
  6. DUODOPA [Suspect]
     Active Substance: CARBIDOPA\LEVODOPA
     Dosage: AM 1ML, CONT DOSE 2ML/H (16 HRS), ND 1.5ML (8HRS), ED 1 ML
     Route: 050
     Dates: start: 20131211, end: 20140225

REACTIONS (7)
  - Fall [Unknown]
  - Fatigue [Unknown]
  - Muscle rigidity [Recovering/Resolving]
  - Gait disturbance [Unknown]
  - Pain in extremity [Unknown]
  - Arthralgia [Unknown]
  - Depressed mood [Unknown]
